FAERS Safety Report 4374619-0 (Version None)
Quarter: 2004Q2

REPORT INFORMATION
  Report Type: 
  Country: None (occurrence: None)
  Receive Date: 20040602
  Receipt Date: 20040212
  Transmission Date: 20050107
  Serious: No
  Sender: FDA-Public Use
  Company Number: 200412498BWH

PATIENT
  Age: 62 Year
  Sex: Male
  Weight: 81.6475 kg

DRUGS (9)
  1. LEVITRA [Suspect]
     Indication: ERECTILE DYSFUNCTION
     Dosage: SEE IMAGE
     Route: 048
     Dates: start: 20040124
  2. LEVITRA [Suspect]
     Indication: ERECTILE DYSFUNCTION
     Dosage: SEE IMAGE
     Route: 048
     Dates: start: 20040209
  3. LISINOPRIL W/HYDROCHOROTHIAZIDE [Concomitant]
  4. INDERAL LA [Concomitant]
  5. ZOLOFT [Concomitant]
  6. ZOCOR [Concomitant]
  7. LORAZEPAM [Concomitant]
  8. ASPIRIN [Concomitant]
  9. VIRAGRA [Concomitant]

REACTIONS (5)
  - AGITATION [None]
  - ERECTILE DYSFUNCTION [None]
  - FLUSHING [None]
  - NERVOUSNESS [None]
  - TENSION [None]
